FAERS Safety Report 4422044-6 (Version None)
Quarter: 2004Q3

REPORT INFORMATION
  Report Type: 
  Country: None (occurrence: None)
  Receive Date: 20040804
  Receipt Date: 20040720
  Transmission Date: 20050211
  Serious: Yes (Hospitalization, Other)
  Sender: FDA-Public Use
  Company Number: 04-277-0092

PATIENT
  Age: 48 Year
  Sex: Male

DRUGS (1)
  1. DOXORUBICIN HCL [Suspect]
     Indication: HEPATIC NEOPLASM MALIGNANT
     Dosage: 60MG/M^2 IV EVERY 3WK
     Dates: start: 20040320, end: 20040618

REACTIONS (2)
  - CONDITION AGGRAVATED [None]
  - HEPATITIS B [None]
